FAERS Safety Report 4622558-X (Version None)
Quarter: 2005Q1

REPORT INFORMATION
  Report Type: 
  Country: None (occurrence: None)
  Receive Date: 20050325
  Receipt Date: 20050325
  Transmission Date: 20050727
  Serious: No
  Sender: FDA-Public Use
  Company Number: None

PATIENT
  Age: 65 Year
  Sex: Male
  Weight: 90 kg

DRUGS (1)
  1. CITALOPRAM  40MG   FOREST [Suspect]
     Indication: DEPRESSION
     Dosage: 40 MG PO  QD
     Route: 048
     Dates: start: 20050103, end: 20050314

REACTIONS (1)
  - HYPOAESTHESIA [None]
